FAERS Safety Report 16547546 (Version 1)
Quarter: 2019Q3

REPORT INFORMATION
  Report Type: Spontaneous
  Country: US (occurrence: US)
  Receive Date: 20190709
  Receipt Date: 20190709
  Transmission Date: 20191004
  Serious: No
  Sender: FDA-Public Use
  Company Number: US-SA-2019SA184606

PATIENT
  Age: 44 Year
  Sex: Male
  Weight: 108.84 kg

DRUGS (1)
  1. AUBAGIO [Suspect]
     Active Substance: TERIFLUNOMIDE
     Indication: MULTIPLE SCLEROSIS
     Dosage: 14 MG, QD
     Route: 048
     Dates: start: 201904

REACTIONS (4)
  - Balance disorder [Unknown]
  - Alopecia [Unknown]
  - Gastrointestinal disorder [Unknown]
  - Fatigue [Unknown]

NARRATIVE: CASE EVENT DATE: 2019
